FAERS Safety Report 8799736 (Version 2)
Quarter: 2012Q4

REPORT INFORMATION
  Report Type: 
  Country: FR (occurrence: FR)
  Receive Date: 20120919
  Receipt Date: 20121008
  Transmission Date: 20130627
  Serious: Yes (Hospitalization, Other)
  Sender: FDA-Public Use
  Company Number: FR-BIOGENIDEC-2012BI037558

PATIENT
  Age: 52 Year
  Sex: Male
  Weight: 73 kg

DRUGS (2)
  1. TYSABRI [Suspect]
     Indication: MULTIPLE SCLEROSIS
     Route: 042
     Dates: start: 20091223
  2. MECIR [Concomitant]
     Indication: PROSTATIC ADENOMA

REACTIONS (2)
  - Eye naevus [Not Recovered/Not Resolved]
  - Neurosyphilis [Recovered/Resolved]
